FAERS Safety Report 4995787-3 (Version None)
Quarter: 2006Q1

REPORT INFORMATION
  Report Type: 
  Country: None (occurrence: None)
  Receive Date: 20060315
  Receipt Date: 20051214
  Transmission Date: 20060701
  Serious: Yes (Other)
  Sender: FDA-Public Use
  Company Number: 428881

PATIENT
  Sex: Female

DRUGS (2)
  1. BONIVA [Suspect]
     Indication: DRUG USE FOR UNKNOWN INDICATION
     Dates: start: 20051201
  2. LEXAPRO [Concomitant]

REACTIONS (3)
  - FLATULENCE [None]
  - GLOSSODYNIA [None]
  - NASAL DISCOMFORT [None]
